FAERS Safety Report 5198903-6 (Version None)
Quarter: 2006Q4

REPORT INFORMATION
  Report Type: 
  Country: None (occurrence: None)
  Receive Date: 20060925
  Receipt Date: 20060816
  Transmission Date: 20070319
  Serious: Yes (Disabling)
  Sender: FDA-Public Use
  Company Number: PHEH2006US07837

PATIENT
  Age: 64 Year
  Sex: Female
  Weight: 73.9 kg

DRUGS (6)
  1. MYFORTIC [Suspect]
     Indication: RENAL TRANSPLANT
     Dosage: 720 MG, BID, ORAL
     Route: 048
     Dates: start: 20060301, end: 20060608
  2. NORVASC [Concomitant]
  3. NEORAL [Concomitant]
  4. BACTRIM DS [Concomitant]
  5. TOPROL-XL [Concomitant]
  6. SYNTHROID [Concomitant]

REACTIONS (3)
  - ARTHRALGIA [None]
  - OEDEMA PERIPHERAL [None]
  - PAIN IN EXTREMITY [None]
